FAERS Safety Report 6900376-7 (Version None)
Quarter: 2010Q3

REPORT INFORMATION
  Report Type: 
  Country: None (occurrence: None)
  Receive Date: 20100803
  Receipt Date: 20100724
  Transmission Date: 20110219
  Serious: Yes (Hospitalization)
  Sender: FDA-Public Use
  Company Number: PHHY2010US49419

PATIENT
  Sex: Male
  Weight: 78.1 kg

DRUGS (1)
  1. EXJADE [Suspect]
     Indication: METABOLIC SYNDROME
     Dosage: 750 MG, DAILY
     Route: 048
     Dates: start: 20090519

REACTIONS (2)
  - FALL [None]
  - HIP FRACTURE [None]
